FAERS Safety Report 6535696-1 (Version None)
Quarter: 2010Q1

REPORT INFORMATION
  Report Type: 
  Country: None (occurrence: None)
  Receive Date: 20100106
  Receipt Date: 20091223
  Transmission Date: 20100710
  Serious: Yes (Hospitalization)
  Sender: FDA-Public Use
  Company Number: 003282

PATIENT
  Sex: Male
  Weight: 2.8 kg

DRUGS (6)
  1. XYZAL [Suspect]
     Indication: HYPERSENSITIVITY
     Dosage: 5 MG QD ORAL
     Route: 048
     Dates: start: 20090101
  2. OMEPRAZOLE [Suspect]
     Indication: GASTROOESOPHAGEAL REFLUX DISEASE
     Dosage: DAILY DOSE: 1 UNIT ORAL
     Route: 048
     Dates: start: 20090701, end: 20091007
  3. ASCORBIC ACID (TIMOFERL) [Suspect]
     Indication: ANAEMIA
     Dosage: DAILY DOSE: 1 UNIT ORAL
     Route: 048
     Dates: start: 20090601, end: 20091007
  4. UVEDDOSE (UVEDOSE) [Suspect]
     Indication: PROPHYLAXIS
     Dosage: DAILY DOSE: 1 PHIAL ORAL
     Route: 048
     Dates: start: 20090701
  5. CALCIUM (CALCIUM) [Suspect]
     Indication: BREAST FEEDING
     Dosage: DAILY DOSE: 1 UNIT ORAL
     Route: 048
     Dates: start: 20090701, end: 20091007
  6. SYNTOCINON [Concomitant]

REACTIONS (2)
  - DRUG EXPOSURE DURING PREGNANCY [None]
  - PLACENTAL INFARCTION [None]
